FAERS Safety Report 9178229 (Version 1)
Quarter: 2013Q1

REPORT INFORMATION
  Report Type: Spontaneous
  Country: US (occurrence: US)
  Receive Date: 20130321
  Receipt Date: 20130321
  Transmission Date: 20140127
  Serious: Yes (Other)
  Sender: FDA-Public Use
  Company Number: US-009507513-1303USA007755

PATIENT
  Age: 55 Year
  Sex: Female

DRUGS (7)
  1. VICTRELIS [Suspect]
     Indication: HEPATITIS C
     Dosage: UNK
     Dates: start: 20110819
  2. PEGASYS [Suspect]
     Indication: HEPATITIS C
     Dosage: UNK UNK, QW, 1 IN 1 WEEK, PRE FILLED
     Route: 065
     Dates: start: 20090501
  3. PEGASYS [Suspect]
     Dosage: 90 MICROGRAM, 1 IN 1 WEEK
     Dates: start: 20090724, end: 20090727
  4. PEGASYS [Suspect]
     Dosage: UNK, 1/2 DOSE FOR 3 WEEKS
     Dates: start: 20090731
  5. PEGASYS [Suspect]
     Dosage: 135 MICROGRAM, UNK, 1 IN1 WEEK
     Dates: start: 20090901, end: 20100503
  6. RIBASPHERE [Suspect]
     Indication: HEPATITIS C
     Dosage: 800 MG, QD
     Route: 065
     Dates: start: 20090501, end: 20090724
  7. RIBASPHERE [Suspect]
     Dosage: 800 UNK, UNK
     Dates: start: 20090731, end: 20100503

REACTIONS (23)
  - Neutrophil count decreased [Unknown]
  - Gingival inflammation [Not Recovered/Not Resolved]
  - White blood cell count decreased [Recovering/Resolving]
  - Fatigue [Unknown]
  - Nausea [Unknown]
  - Vomiting [Unknown]
  - Infected skin ulcer [Unknown]
  - Insomnia [Unknown]
  - Nightmare [Unknown]
  - Mental disorder [Unknown]
  - Lethargy [Not Recovered/Not Resolved]
  - Nasopharyngitis [Not Recovered/Not Resolved]
  - Oropharyngeal pain [Not Recovered/Not Resolved]
  - Alopecia [Unknown]
  - Irritability [Unknown]
  - Hepatic enzyme increased [Unknown]
  - Epistaxis [Not Recovered/Not Resolved]
  - Rash [Not Recovered/Not Resolved]
  - Eyelid thickening [Not Recovered/Not Resolved]
  - Fatigue [Not Recovered/Not Resolved]
  - Platelet count decreased [Not Recovered/Not Resolved]
  - Gait disturbance [Unknown]
  - Hypotension [Unknown]
